FAERS Safety Report 10290458 (Version 1)
Quarter: 2014Q3

REPORT INFORMATION
  Report Type: Spontaneous
  Country: GB (occurrence: None)
  Receive Date: 20140708
  Receipt Date: 20140708
  Transmission Date: 20150326
  Serious: Yes (Hospitalization, Disabling, Other)
  Sender: FDA-Public Use
  Company Number: AUR-APL-2014-07126

PATIENT
  Age: 81 Year
  Sex: Female
  Weight: 50 kg

DRUGS (7)
  1. LEVOFLOXACIN (LEVOFLOXACIN) [Suspect]
     Active Substance: LEVOFLOXACIN
     Indication: PNEUMONIA
     Route: 048
     Dates: start: 20140522, end: 20140527
  2. ADCAL D3 (CALCIUM CARBONATE, COLECALCIFEROL) [Concomitant]
  3. ASPIRIN (ACETYLSALICYLIC ACID) [Concomitant]
     Active Substance: ASPIRIN
  4. FUROSEMIDE (FUROSEMIDE) [Concomitant]
     Active Substance: FUROSEMIDE
  5. BECLOFORTE (BECLOMETASONE DIPROPIONATE) [Concomitant]
  6. SOTALOL (SOTALOL) [Concomitant]
     Active Substance: SOTALOL
  7. SIMVASTATIN 20MG (SIMVASTATIN) UNKNOWN, 20MG [Suspect]
     Active Substance: SIMVASTATIN
     Indication: HYPERCHOLESTEROLAEMIA
     Route: 048

REACTIONS (7)
  - Hepatic function abnormal [None]
  - Alanine aminotransferase increased [None]
  - Blood alkaline phosphatase increased [None]
  - Mobility decreased [None]
  - Activities of daily living impaired [None]
  - Somnolence [None]
  - Eating disorder [None]

NARRATIVE: CASE EVENT DATE: 20140527
